FAERS Safety Report 8927920 (Version 1)
Quarter: 2012Q4

REPORT INFORMATION
  Report Type: Spontaneous
  Country: US (occurrence: None)
  Receive Date: 20121126
  Receipt Date: 20121126
  Transmission Date: 20130627
  Serious: No
  Sender: FDA-Public Use
  Company Number: None

PATIENT
  Age: 75 Year
  Sex: Female
  Weight: 78.4 kg

DRUGS (1)
  1. NITROFURANTOIN [Suspect]
     Indication: UTI
     Route: 048
     Dates: start: 20071116, end: 20090930

REACTIONS (3)
  - Pulmonary fibrosis [None]
  - Pneumonitis [None]
  - Drug hypersensitivity [None]
